FAERS Safety Report 5083658-6 (Version None)
Quarter: 2006Q3

REPORT INFORMATION
  Report Type: 
  Country: None (occurrence: None)
  Receive Date: 20060818
  Receipt Date: 20060808
  Transmission Date: 20061208
  Serious: Yes (Other)
  Sender: FDA-Public Use
  Company Number: US-SANOFI-SYNTHELABO-A03200605065

PATIENT
  Age: 57 Year
  Sex: Male

DRUGS (2)
  1. ASPIRIN [Suspect]
     Indication: STENT PLACEMENT
     Dosage: UNK
     Route: 048
  2. CLOPIDOGREL [Suspect]
     Indication: STENT PLACEMENT
     Dosage: UNK
     Route: 048

REACTIONS (3)
  - HYPERTONIA [None]
  - LOSS OF CONSCIOUSNESS [None]
  - THROMBOSIS IN DEVICE [None]
